FAERS Safety Report 7778173-2 (Version None)
Quarter: 2011Q3

REPORT INFORMATION
  Report Type: 
  Country: None (occurrence: None)
  Receive Date: 20110926
  Receipt Date: 20110914
  Transmission Date: 20111222
  Serious: Yes (Other)
  Sender: FDA-Public Use
  Company Number: FR-SANOFI-AVENTIS-2011SA059739

PATIENT
  Age: 68 Year
  Sex: Male

DRUGS (25)
  1. LASIX [Suspect]
     Route: 065
     Dates: start: 20110224, end: 20110224
  2. AMIKACIN [Suspect]
     Route: 042
     Dates: start: 20110223
  3. VANCOMYCIN [Suspect]
     Route: 065
     Dates: start: 20110207
  4. OMEPRAZOLE [Concomitant]
     Route: 065
  5. ROCEPHIN [Concomitant]
     Route: 065
     Dates: start: 20110101
  6. ATORVASTATIN CALCIUM [Concomitant]
     Route: 065
  7. AMIKACIN [Suspect]
     Indication: STAPHYLOCOCCAL SEPSIS
     Route: 042
     Dates: start: 20110223
  8. ANTIINFLAMMATORY/ANTIRHEUMATIC NON-STEROIDS [Concomitant]
     Route: 065
     Dates: start: 20110101
  9. DOBUTAMINE HCL [Concomitant]
     Indication: CARDIOGENIC SHOCK
     Dosage: 5 GAMMA/KG/MIN
     Route: 065
     Dates: start: 20110123
  10. IMIPENEM AND CILASTATIN SODIUM [Concomitant]
     Indication: SEPSIS
     Route: 065
     Dates: start: 20110207
  11. VANCOMYCIN [Suspect]
     Route: 065
     Dates: start: 20110207
  12. ASPIRIN [Concomitant]
     Route: 065
  13. VANCOMYCIN [Suspect]
     Indication: STAPHYLOCOCCAL SEPSIS
     Route: 042
     Dates: start: 20110223
  14. VANCOMYCIN [Suspect]
     Route: 042
     Dates: start: 20110223
  15. ALBUMIN (HUMAN) [Suspect]
     Indication: PLASMA EXPANDER TRANSFUSION
     Route: 042
     Dates: start: 20110224, end: 20110224
  16. AMIKACIN [Suspect]
     Route: 065
     Dates: start: 20110101
  17. AMIKACIN [Suspect]
     Route: 065
     Dates: start: 20110101
  18. MIDAZOLAM HCL [Concomitant]
     Indication: SEDATION
     Route: 065
     Dates: start: 20110101
  19. SUFENTANIL CITRATE [Concomitant]
     Indication: SEDATION
     Route: 065
     Dates: start: 20110101
  20. NICARDIPINE HCL [Concomitant]
     Route: 065
  21. CEFTAZIDIME PENTAHYDRATE [Suspect]
     Indication: STAPHYLOCOCCAL SEPSIS
     Route: 042
     Dates: start: 20110223
  22. FLAGYL [Concomitant]
     Route: 065
     Dates: start: 20110101
  23. PIPERACILLIN [Concomitant]
     Route: 065
     Dates: start: 20110207
  24. NOVOSEVEN [Concomitant]
     Route: 065
     Dates: start: 20110201
  25. HEPARIN [Concomitant]
     Route: 065
     Dates: end: 20110201

REACTIONS (4)
  - HYPERTENSION [None]
  - CYANOSIS [None]
  - PYREXIA [None]
  - TACHYCARDIA [None]
